FAERS Safety Report 12137075 (Version 1)
Quarter: 2016Q1

REPORT INFORMATION
  Report Type: Spontaneous
  Country: US (occurrence: None)
  Receive Date: 20160301
  Receipt Date: 20160301
  Transmission Date: 20160526
  Serious: No
  Sender: FDA-Public Use
  Company Number: None

PATIENT
  Age: 59 Year
  Sex: Female
  Weight: 86.18 kg

DRUGS (7)
  1. MAGNESIUM [Concomitant]
     Active Substance: MAGNESIUM
  2. LISINOPRIL. [Concomitant]
     Active Substance: LISINOPRIL
  3. SHAKLEE MULTIVITAMINS W/O IRON [Concomitant]
  4. HCTZ [Concomitant]
     Active Substance: HYDROCHLOROTHIAZIDE
  5. HYDROCHLOROTHIAZIDE 50MG TABLETS EXCELLIUM [Suspect]
     Active Substance: HYDROCHLOROTHIAZIDE
     Indication: HYPERTENSION
     Dosage: 1 PILL ONCE DAILY TAKEN BY MOUTH
     Route: 048
     Dates: start: 20160129, end: 20160207
  6. COQ10 [Concomitant]
     Active Substance: UBIDECARENONE
  7. VITAMIN D [Concomitant]
     Active Substance: CHOLECALCIFEROL

REACTIONS (6)
  - Product physical issue [None]
  - Bladder spasm [None]
  - Product colour issue [None]
  - Product substitution issue [None]
  - Urinary tract infection [None]
  - Micturition urgency [None]

NARRATIVE: CASE EVENT DATE: 20160129
